FAERS Safety Report 4330395-9 (Version None)
Quarter: 2004Q2

REPORT INFORMATION
  Report Type: 
  Country: None (occurrence: None)
  Receive Date: 20040402
  Receipt Date: 20040329
  Transmission Date: 20050107
  Serious: Yes (Other)
  Sender: FDA-Public Use
  Company Number: 200413687GDDC

PATIENT
  Age: 54 Year
  Sex: Female

DRUGS (3)
  1. CALCITONIN-SALMON [Suspect]
     Dosage: DOSE: UNK GIVEN PARENTERALLY
  2. AREDIA [Concomitant]
     Dosage: DOSE: UNK
  3. UNKNOWN DRUG [Concomitant]

REACTIONS (2)
  - BLOOD TRIGLYCERIDES INCREASED [None]
  - PANCREATITIS [None]
